FAERS Safety Report 15458568 (Version 1)
Quarter: 2018Q4

REPORT INFORMATION
  Report Type: Report from Study
  Country: ES (occurrence: ES)
  Receive Date: 20181003
  Receipt Date: 20181003
  Transmission Date: 20190204
  Serious: Yes (Hospitalization)
  Sender: FDA-Public Use
  Company Number: ES-TEVA-2018-ES-960144

PATIENT
  Age: 87 Year
  Sex: Female

DRUGS (5)
  1. IDEOS UNIDIA 1000 MG/880 UI GRANULADO EFERVESCENTE, 30 SOBRES [Concomitant]
     Dosage: 1 GRAM DAILY;
     Route: 048
     Dates: start: 20170526, end: 20171116
  2. SIMVASTATINA (1023A) [Concomitant]
     Active Substance: SIMVASTATIN
     Indication: DYSLIPIDAEMIA
     Dosage: 20 MILLIGRAM DAILY;
     Route: 048
     Dates: start: 20110606
  3. CLOPIDOGREL [Suspect]
     Active Substance: CLOPIDOGREL BISULFATE
     Indication: HEAD INJURY
     Dosage: 75 MILLIGRAM DAILY;
     Route: 048
     Dates: start: 201710, end: 20171116
  4. LORAZEPAM (1864A) [Concomitant]
     Active Substance: LORAZEPAM
     Dosage: 1 MILLIGRAM DAILY;
     Route: 048
     Dates: start: 20170922
  5. METFORMINA (1359A) [Concomitant]
     Active Substance: METFORMIN HYDROCHLORIDE
     Indication: DIABETES MELLITUS
     Dosage: 850 MILLIGRAM DAILY;
     Route: 048
     Dates: start: 20091228, end: 20171116

REACTIONS (1)
  - Lower gastrointestinal haemorrhage [Recovered/Resolved]

NARRATIVE: CASE EVENT DATE: 20171116
